FAERS Safety Report 9179118 (Version 1)
Quarter: 2013Q1

REPORT INFORMATION
  Report Type: Spontaneous
  Country: US (occurrence: US)
  Receive Date: 20130321
  Receipt Date: 20130321
  Transmission Date: 20140127
  Serious: Yes (Hospitalization)
  Sender: FDA-Public Use
  Company Number: US-GLAXOSMITHKLINE-A0903199A

PATIENT
  Age: 56 Year
  Sex: Male

DRUGS (1)
  1. AVANDIA [Suspect]
     Indication: DIABETES MELLITUS
     Dosage: 8MG PER DAY
     Route: 048
     Dates: start: 2004, end: 20051230

REACTIONS (5)
  - Myocardial infarction [Not Recovered/Not Resolved]
  - Pain [Unknown]
  - Stent placement [Unknown]
  - Cardiac operation [Unknown]
  - Cardiac failure congestive [Unknown]
